FAERS Safety Report 7372187-2 (Version None)
Quarter: 2011Q1

REPORT INFORMATION
  Report Type: 
  Country: None (occurrence: None)
  Receive Date: 20110225
  Receipt Date: 20101129
  Transmission Date: 20110831
  Serious: No
  Sender: FDA-Public Use
  Company Number: 319467

PATIENT
  Age: 50 Year
  Sex: Female

DRUGS (7)
  1. GLIMEPIRIDE [Concomitant]
  2. ORAL CONTRACEPTIVE NOS (ORAL CONTRACEPTIVE NOS) [Concomitant]
  3. TRILIPIX [Concomitant]
  4. METFORMIN HCL [Concomitant]
  5. SIMVASTATIN [Concomitant]
  6. VICTOZA [Suspect]
     Indication: TYPE 2 DIABETES MELLITUS
     Dosage: 1.2 MG, QD, SUBCUTANEOUS
     Route: 058
     Dates: start: 20100101
  7. ACTOS [Concomitant]

REACTIONS (2)
  - BACK PAIN [None]
  - ABDOMINAL PAIN [None]
